FAERS Safety Report 7686819-2 (Version None)
Quarter: 2011Q3

REPORT INFORMATION
  Report Type: 
  Country: None (occurrence: None)
  Receive Date: 20110816
  Receipt Date: 20110809
  Transmission Date: 20111222
  Serious: Yes (Other)
  Sender: FDA-Public Use
  Company Number: GB-TEVA-295858ISR

PATIENT
  Sex: Male

DRUGS (3)
  1. M-M-RVAXPRO VACCINE [Suspect]
     Route: 064
  2. ACIDEX SUSPENTION [Suspect]
     Route: 064
  3. AMOXICILLIN [Suspect]
     Route: 064

REACTIONS (2)
  - FAILURE TO THRIVE [None]
  - MATERNAL EXPOSURE DURING PREGNANCY [None]
